FAERS Safety Report 7709167-0 (Version None)
Quarter: 2011Q3

REPORT INFORMATION
  Report Type: 
  Country: None (occurrence: None)
  Receive Date: 20110825
  Receipt Date: 20110817
  Transmission Date: 20111222
  Serious: Yes (Hospitalization)
  Sender: FDA-Public Use
  Company Number: PHFR2011GB04884

PATIENT
  Sex: Male

DRUGS (9)
  1. CLOZAPINE [Suspect]
     Dosage: 350 MG/DAY
     Route: 048
  2. ACETYLSALICYLIC ACID SRT [Concomitant]
     Dosage: 75 MG MANE
  3. BISOPROLOL FUMARATE [Concomitant]
     Dosage: 2.5 MG MANE
  4. ZOPICLONE [Concomitant]
     Dosage: 7.5 MG NOCTE
  5. SIMAVASTATIN [Concomitant]
     Dosage: 40 MG NOCTE
  6. CITALOPRAM [Concomitant]
     Dosage: 50 MG MANE
  7. CLOZAPINE [Suspect]
     Indication: SCHIZOPHRENIA
     Route: 048
     Dates: start: 20070908
  8. ACETAMINOPHEN [Concomitant]
     Dosage: 1 G, QID
  9. OMEPRAZOLE [Concomitant]
     Dosage: 10 MG MANE

REACTIONS (1)
  - PLEURITIC PAIN [None]
